FAERS Safety Report 10206526 (Version 1)
Quarter: 2014Q2

REPORT INFORMATION
  Report Type: Spontaneous
  Country: US (occurrence: None)
  Receive Date: 20140528
  Receipt Date: 20140528
  Transmission Date: 20141212
  Serious: Yes (Death)
  Sender: FDA-Public Use
  Company Number: None

PATIENT
  Age: 87 Year
  Sex: Male

DRUGS (6)
  1. PRADAXA [Suspect]
     Indication: ATRIAL FIBRILLATION
     Dosage: AF
     Route: 048
     Dates: start: 20140106
  2. LASIX [Concomitant]
  3. ALLOPURINAL [Concomitant]
  4. LISINOPRIL [Concomitant]
  5. SIMVASTATIN [Concomitant]
  6. VITAMIN C [Concomitant]

REACTIONS (5)
  - International normalised ratio increased [None]
  - Blood urea increased [None]
  - Blood creatinine increased [None]
  - Cardiac arrest [None]
  - Haemoglobin decreased [None]
